FAERS Safety Report 6345560-9 (Version None)
Quarter: 2009Q3

REPORT INFORMATION
  Report Type: 
  Country: None (occurrence: None)
  Receive Date: 20090909
  Receipt Date: 20090828
  Transmission Date: 20100115
  Serious: Yes (Hospitalization)
  Sender: FDA-Public Use
  Company Number: AT-BAYER-AT-2005-004748

PATIENT
  Age: 59 Year
  Sex: Male
  Weight: 80 kg

DRUGS (5)
  1. CAMPATH [Suspect]
     Indication: CHRONIC LYMPHOCYTIC LEUKAEMIA
     Route: 058
     Dates: start: 20041012, end: 20050211
  2. FLUDARABINE PHOSPHATE [Suspect]
     Indication: CHRONIC LYMPHOCYTIC LEUKAEMIA
     Dosage: 4 CYCLES
     Route: 048
  3. DIBONDRIN [Concomitant]
  4. MEXALEN [Concomitant]
  5. LIDAPRIM [Concomitant]

REACTIONS (3)
  - HAEMOPTYSIS [None]
  - LUNG INFILTRATION [None]
  - PYREXIA [None]
